FAERS Safety Report 16680098 (Version 1)
Quarter: 2019Q3

REPORT INFORMATION
  Report Type: Spontaneous
  Country: US (occurrence: US)
  Receive Date: 20190807
  Receipt Date: 20190807
  Transmission Date: 20191004
  Serious: No
  Sender: FDA-Public Use
  Company Number: US-ELI_LILLY_AND_COMPANY-US201907014636

PATIENT
  Sex: Male

DRUGS (1)
  1. HUMATROPE [Suspect]
     Active Substance: SOMATROPIN
     Indication: GROWTH DISORDER
     Dosage: 1.7 MG, UNKNOWN
     Route: 065
     Dates: start: 201807

REACTIONS (2)
  - Incorrect dose administered [Unknown]
  - Wrong technique in device usage process [Not Recovered/Not Resolved]
